FAERS Safety Report 8114168-7 (Version None)
Quarter: 2012Q1

REPORT INFORMATION
  Report Type: 
  Country: None (occurrence: None)
  Receive Date: 20120205
  Receipt Date: 20120127
  Transmission Date: 20120608
  Serious: Yes (Hospitalization)
  Sender: FDA-Public Use
  Company Number: PHHY2012GB007189

PATIENT

DRUGS (2)
  1. CLARITHROMYCIN [Suspect]
     Indication: URINARY TRACT INFECTION
  2. CLARITHROMYCIN [Suspect]
     Indication: PNEUMONIA
     Dosage: 50 MG, UNK

REACTIONS (9)
  - LIMB DISCOMFORT [None]
  - COUGH [None]
  - PAIN [None]
  - ARTHRALGIA [None]
  - SLEEP DISORDER [None]
  - DRUG ADMINISTRATION ERROR [None]
  - OEDEMA PERIPHERAL [None]
  - LOSS OF PROPRIOCEPTION [None]
  - BURNING SENSATION [None]
